FAERS Safety Report 6118029-4 (Version None)
Quarter: 2009Q1

REPORT INFORMATION
  Report Type: 
  Country: None (occurrence: None)
  Receive Date: 20090314
  Receipt Date: 20090202
  Transmission Date: 20090719
  Serious: No
  Sender: FDA-Public Use
  Company Number: US-ABBOTT-09P-163-0501611-00

PATIENT
  Sex: Female
  Weight: 57.204 kg

DRUGS (2)
  1. HUMIRA [Suspect]
     Indication: RHEUMATOID ARTHRITIS
     Dates: start: 20050101
  2. LEVAQUIN [Suspect]
     Dates: start: 20090116, end: 20090116

REACTIONS (8)
  - ASTHMA [None]
  - BACTERIAL INFECTION [None]
  - DYSPNOEA [None]
  - FEELING ABNORMAL [None]
  - LARYNGITIS [None]
  - NASOPHARYNGITIS [None]
  - NONSPECIFIC REACTION [None]
  - SINUSITIS [None]
